FAERS Safety Report 8570917-5 (Version None)
Quarter: 2012Q3

REPORT INFORMATION
  Report Type: 
  Country: None (occurrence: None)
  Receive Date: 20120806
  Receipt Date: 20120725
  Transmission Date: 20120928
  Serious: Yes (Hospitalization)
  Sender: FDA-Public Use
  Company Number: US-BIOGENIDEC-2012BI027637

PATIENT
  Age: 52 Year
  Sex: Female

DRUGS (2)
  1. TYSABRI [Suspect]
     Indication: MULTIPLE SCLEROSIS
     Route: 042
     Dates: start: 20070201, end: 20070502
  2. TYSABRI [Suspect]
     Route: 042
     Dates: start: 20110224

REACTIONS (5)
  - ASTHENIA [None]
  - HEADACHE [None]
  - CONTUSION [None]
  - BRONCHITIS [None]
  - DECREASED APPETITE [None]
